FAERS Safety Report 24845568 (Version 1)
Quarter: 2025Q1

REPORT INFORMATION
  Report Type: Spontaneous
  Country: GB (occurrence: GB)
  Receive Date: 20250115
  Receipt Date: 20250115
  Transmission Date: 20250408
  Serious: Yes (Other)
  Sender: TEVA
  Company Number: None

PATIENT
  Age: 46 Year
  Sex: Female
  Weight: 80 kg

DRUGS (2)
  1. DOXYCYCLINE [Suspect]
     Active Substance: DOXYCYCLINE
     Indication: Sinusitis
     Dosage: 200 MG BID
     Route: 065
     Dates: start: 20250102
  2. Birth control mini pill [Concomitant]
     Indication: Oral contraception
     Dates: start: 2022

REACTIONS (3)
  - Contusion [Not Recovered/Not Resolved]
  - Pruritus [Not Recovered/Not Resolved]
  - Pruritus [Not Recovered/Not Resolved]

NARRATIVE: CASE EVENT DATE: 20250104
